FAERS Safety Report 8554745-2 (Version None)
Quarter: 2012Q3

REPORT INFORMATION
  Report Type: 
  Country: None (occurrence: None)
  Receive Date: 20120725
  Receipt Date: 20120725
  Transmission Date: 20120928
  Serious: Yes (Hospitalization)
  Sender: FDA-Public Use
  Company Number: None

PATIENT
  Sex: Female
  Weight: 115 kg

DRUGS (2)
  1. CARBOPLATIN [Suspect]
  2. TAXOL [Suspect]

REACTIONS (4)
  - WHITE BLOOD CELL COUNT DECREASED [None]
  - CONFUSIONAL STATE [None]
  - FEBRILE NEUTROPENIA [None]
  - HEADACHE [None]
